FAERS Safety Report 6297001-8 (Version None)
Quarter: 2009Q3

REPORT INFORMATION
  Report Type: 
  Country: None (occurrence: None)
  Receive Date: 20090804
  Receipt Date: 20090730
  Transmission Date: 20100115
  Serious: Yes (Death, Other)
  Sender: FDA-Public Use
  Company Number: JP-WYE-H02024508

PATIENT
  Sex: Female
  Weight: 41 kg

DRUGS (1)
  1. MYLOTARG [Suspect]
     Indication: ACUTE MYELOID LEUKAEMIA RECURRENT
     Route: 041
     Dates: start: 20070110, end: 20070110

REACTIONS (3)
  - BLOOD PRESSURE DECREASED [None]
  - CHOLECYSTITIS [None]
  - PNEUMONIA [None]
